FAERS Safety Report 6630201-3 (Version None)
Quarter: 2010Q1

REPORT INFORMATION
  Report Type: 
  Country: None (occurrence: None)
  Receive Date: 20100311
  Receipt Date: 20100302
  Transmission Date: 20100710
  Serious: Yes (Death, Hospitalization)
  Sender: FDA-Public Use
  Company Number: A0806089A

PATIENT
  Age: 56 Year
  Sex: Male
  Weight: 54.5 kg

DRUGS (9)
  1. PAZOPANIB [Suspect]
     Dosage: 800MG PER DAY
     Route: 048
     Dates: start: 20090728, end: 20090823
  2. SENNOSIDE [Concomitant]
  3. ACETAMINOPHEN [Concomitant]
  4. ETORICOXIB [Concomitant]
  5. AMITRIPTYLINE HCL [Concomitant]
  6. BISACODYL [Concomitant]
  7. LACTULOSE [Concomitant]
  8. LEVOTHYROXINE [Concomitant]
  9. ESOMEPRAZOLE [Concomitant]

REACTIONS (9)
  - DECREASED APPETITE [None]
  - DISEASE PROGRESSION [None]
  - GENERAL PHYSICAL HEALTH DETERIORATION [None]
  - HYPERKALAEMIA [None]
  - HYPONATRAEMIA [None]
  - NEOPLASM PROGRESSION [None]
  - OROPHARYNGEAL PAIN [None]
  - PERFORMANCE STATUS DECREASED [None]
  - URINARY TRACT INFECTION [None]
